FAERS Safety Report 5345907-6 (Version None)
Quarter: 2007Q2

REPORT INFORMATION
  Report Type: 
  Country: None (occurrence: None)
  Receive Date: 20070605
  Receipt Date: 20070530
  Transmission Date: 20071010
  Serious: Yes (Hospitalization)
  Sender: FDA-Public Use
  Company Number: A0653504A

PATIENT
  Sex: Male

DRUGS (4)
  1. AVANDIA [Suspect]
     Dosage: 4MG PER DAY
     Route: 048
     Dates: end: 20070529
  2. CHEMOTHERAPY [Suspect]
     Indication: NON-HODGKIN'S LYMPHOMA
     Route: 065
  3. METFORMIN HCL [Concomitant]
  4. LIPITOR [Concomitant]

REACTIONS (6)
  - DYSPNOEA [None]
  - IMPLANTABLE DEFIBRILLATOR INSERTION [None]
  - MUSCULAR WEAKNESS [None]
  - NON-HODGKIN'S LYMPHOMA [None]
  - PNEUMONIA [None]
  - PULMONARY THROMBOSIS [None]
